FAERS Safety Report 17456481 (Version 1)
Quarter: 2020Q1

REPORT INFORMATION
  Report Type: Spontaneous
  Country: US (occurrence: US)
  Receive Date: 20200225
  Receipt Date: 20200225
  Transmission Date: 20200409
  Serious: No
  Sender: FDA-Public Use
  Company Number: US-PFIZER INC-2013316933

PATIENT
  Age: 71 Year
  Sex: Male
  Weight: 158.73 kg

DRUGS (20)
  1. LIPITOR [Concomitant]
     Active Substance: ATORVASTATIN CALCIUM
     Dosage: 40 MG, DAILY
     Route: 048
  2. ALLOPURINOL. [Concomitant]
     Active Substance: ALLOPURINOL
     Dosage: 300 MG, 1X/DAY
     Route: 048
  3. HYDROCHLOROTHIAZIDE. [Concomitant]
     Active Substance: HYDROCHLOROTHIAZIDE
     Dosage: 25 MG, 1X/DAY
     Route: 048
  4. ALBUTEROL. [Concomitant]
     Active Substance: ALBUTEROL
     Dosage: UNK, AS NEEDED (2 INH, Q4 HRS)
     Route: 055
  5. LYRICA [Suspect]
     Active Substance: PREGABALIN
     Indication: FACIAL NEURALGIA
     Dosage: 150 MG, 2X/DAY
     Route: 048
     Dates: start: 200901
  6. LYRICA [Suspect]
     Active Substance: PREGABALIN
     Dosage: 300 MG, 2X/DAY
     Route: 048
  7. FLUOROURACIL. [Concomitant]
     Active Substance: FLUOROURACIL
     Indication: DYSPLASTIC NAEVUS
     Dosage: UNK, 2X/DAY (1 APP, BID, THIN FILM FOR 3 WEEKS)
     Route: 061
  8. ACETAMINOPHEN W/HYDROCODONE [Concomitant]
     Active Substance: ACETAMINOPHEN\HYDROCODONE
     Indication: PAIN
     Dosage: UNK , AS NEEDED (ACETAMINOPHEN 325 MG /HYDROCODONE 5 MG, 1-2 TABS)
     Route: 048
  9. ALBUTEROL. [Concomitant]
     Active Substance: ALBUTEROL
     Indication: WHEEZING
     Dosage: UNK, AS NEEDED (2 PUFF, QID)
     Route: 055
  10. RETIN-A [Concomitant]
     Active Substance: TRETINOIN
     Dosage: UNK [1 APP, TOP, HS; WASH HANDS BEFORE APPLYING, #60 GM]
     Route: 061
  11. IBUPROFEN. [Concomitant]
     Active Substance: IBUPROFEN
     Dosage: 600 MG, AS NEEDED (4 TIMES DAILY)
     Route: 048
  12. MEDROL [Concomitant]
     Active Substance: METHYLPREDNISOLONE
     Dosage: 4 MG, SINGLE (AS DIRECTED ON PACKAGE LABELLING 6 DAYS)
     Route: 048
  13. SYMBICORT [Concomitant]
     Active Substance: BUDESONIDE\FORMOTEROL FUMARATE DIHYDRATE
     Dosage: UNK, 2X/DAY (BUDESONIDE 160 MCG, FORMOTEROL FUMARATE 4.5 MCG, 2 PUFFS BID)
     Route: 055
  14. FLUOROURACIL. [Concomitant]
     Active Substance: FLUOROURACIL
     Indication: SKIN LESION
  15. MIRALAX [Concomitant]
     Active Substance: POLYETHYLENE GLYCOL 3350
     Dosage: 17 G, DAILY (DISSOLVE IN 8OZ WATER OR JUICE)
     Route: 048
  16. LISINOPRIL. [Concomitant]
     Active Substance: LISINOPRIL
     Dosage: 10 MG, DAILY
     Route: 048
  17. DICLOFENAC SODIUM. [Concomitant]
     Active Substance: DICLOFENAC SODIUM
     Indication: PAIN
     Dosage: 75 MG, AS NEEDED (BID WITH FOOD)
     Route: 048
  18. OXYCODONE [Concomitant]
     Active Substance: OXYCODONE
     Indication: PAIN
     Dosage: 10 MG, AS NEEDED (Q6HR)
     Route: 048
  19. ASPIRIN 81 [Concomitant]
     Active Substance: ASPIRIN
     Dosage: 81 MG, DAILY
     Route: 048
  20. NITROGLYCERIN. [Concomitant]
     Active Substance: NITROGLYCERIN
     Indication: PAIN
     Dosage: 0.4 MG, Q5MIN ((NOT TO EXCEED 3 DOSES/15 MIN-IF PAIN PE)
     Route: 060

REACTIONS (1)
  - Hypoacusis [Unknown]
